FAERS Safety Report 13585787 (Version 3)
Quarter: 2017Q4

REPORT INFORMATION
  Report Type: Spontaneous
  Country: US (occurrence: US)
  Receive Date: 20170526
  Receipt Date: 20171107
  Transmission Date: 20180320
  Serious: Yes (Other)
  Sender: FDA-Public Use
  Company Number: US-PFIZER INC-2017230577

PATIENT
  Age: 61 Year
  Sex: Female

DRUGS (3)
  1. XELJANZ [Suspect]
     Active Substance: TOFACITINIB CITRATE
     Dosage: 5 MG, 2X/DAY
     Route: 048
  2. XELJANZ [Suspect]
     Active Substance: TOFACITINIB CITRATE
     Dosage: 5 MG, 2X/DAY
     Route: 048
     Dates: start: 201706
  3. XELJANZ [Suspect]
     Active Substance: TOFACITINIB CITRATE
     Indication: RHEUMATOID ARTHRITIS
     Dosage: UNK
     Route: 048

REACTIONS (28)
  - Nausea [Recovered/Resolved]
  - Paraesthesia [Unknown]
  - Irritable bowel syndrome [Unknown]
  - Insomnia [Unknown]
  - Tenderness [Unknown]
  - Dyspnoea exertional [Unknown]
  - Myalgia [Not Recovered/Not Resolved]
  - Pain [Unknown]
  - Dyspepsia [Unknown]
  - Headache [Unknown]
  - Dry mouth [Unknown]
  - Fatigue [Unknown]
  - Burning sensation [Unknown]
  - Contusion [Unknown]
  - Osteoarthritis [Unknown]
  - Joint crepitation [Unknown]
  - Rash [Recovered/Resolved]
  - Exercise tolerance decreased [Unknown]
  - Synovial cyst [Unknown]
  - Arthralgia [Not Recovered/Not Resolved]
  - Pain in extremity [Unknown]
  - Diverticulitis [Unknown]
  - Condition aggravated [Unknown]
  - Joint swelling [Unknown]
  - Gout [Unknown]
  - Musculoskeletal stiffness [Unknown]
  - Hypoaesthesia [Unknown]
  - Thirst [Unknown]

NARRATIVE: CASE EVENT DATE: 20170530
